FAERS Safety Report 24889843 (Version 1)
Quarter: 2025Q1

REPORT INFORMATION
  Report Type: Other
  Country: FR (occurrence: FR)
  Receive Date: 20250127
  Receipt Date: 20250127
  Transmission Date: 20250408
  Serious: No
  Sender: TOLMAR
  Company Number: FR-TOLMAR, INC.-25FR055741

PATIENT
  Age: 75 Year
  Sex: Male

DRUGS (4)
  1. ELIGARD [Suspect]
     Active Substance: LEUPROLIDE ACETATE
     Indication: Prostate cancer
     Dosage: 1 DOSAGE FORM (1 INJECTION), Q 6 MONTH
     Route: 058
     Dates: start: 202403, end: 202403
  2. ELIGARD [Suspect]
     Active Substance: LEUPROLIDE ACETATE
     Dosage: 1 DOSAGE FORM (1 INJECTION), Q 6 MONTH
     Route: 058
     Dates: start: 20240907, end: 20240907
  3. ELIGARD [Suspect]
     Active Substance: LEUPROLIDE ACETATE
     Indication: Prostate cancer
  4. ERLEADA [Suspect]
     Active Substance: APALUTAMIDE
     Indication: Prostate cancer
     Dosage: 1 DOSAGE FORM (TABLET), QD
     Route: 048
     Dates: start: 202406

REACTIONS (1)
  - Lichenoid keratosis [Not Recovered/Not Resolved]

NARRATIVE: CASE EVENT DATE: 20240914
